FAERS Safety Report 22351574 (Version 3)
Quarter: 2024Q1

REPORT INFORMATION
  Report Type: Spontaneous
  Country: CA (occurrence: CA)
  Receive Date: 20230522
  Receipt Date: 20240108
  Transmission Date: 20240409
  Serious: Yes (Hospitalization, Other)
  Sender: FDA-Public Use
  Company Number: CA-PFIZER INC-202101273409

PATIENT
  Age: 46 Year
  Sex: Female

DRUGS (5)
  1. RAPAMUNE [Suspect]
     Active Substance: SIROLIMUS
     Indication: Lymphangioleiomyomatosis
     Dosage: UNK
     Dates: start: 202110
  2. RAPAMUNE [Suspect]
     Active Substance: SIROLIMUS
     Dosage: 2 MG/KG
     Route: 048
  3. RAPAMUNE [Suspect]
     Active Substance: SIROLIMUS
     Dosage: 1 MG TWICE DAILY
     Route: 048
     Dates: end: 202112
  4. RAPAMUNE [Suspect]
     Active Substance: SIROLIMUS
     Dosage: 3 MG, DAILY
     Dates: start: 2021
  5. RAPAMUNE [Suspect]
     Active Substance: SIROLIMUS
     Dosage: 3 MG, DAILY (1MG X 3.00 DAILY)
     Route: 048

REACTIONS (9)
  - Lung disorder [Unknown]
  - Hypoxia [Unknown]
  - Drug level below therapeutic [Unknown]
  - Off label use [Unknown]
  - Incorrect product formulation administered [Unknown]
  - Dysphonia [Unknown]
  - Dyspnoea [Unknown]
  - Malaise [Unknown]
  - Therapeutic response unexpected [Unknown]

NARRATIVE: CASE EVENT DATE: 20211001
